FAERS Safety Report 9391504 (Version 1)
Quarter: 2013Q3

REPORT INFORMATION
  Report Type: Spontaneous
  Country: GB (occurrence: GB)
  Receive Date: 20130709
  Receipt Date: 20130709
  Transmission Date: 20140515
  Serious: Yes (Hospitalization)
  Sender: FDA-Public Use
  Company Number: PHFR2013GB003851

PATIENT
  Age: 78 Year
  Sex: 0

DRUGS (7)
  1. CO-AMOXICLAV [Suspect]
     Indication: EVIDENCE BASED TREATMENT
     Dosage: 1.2 G, TID
     Route: 041
     Dates: start: 20110503, end: 20110507
  2. AMOXICILLIN [Suspect]
     Indication: HELICOBACTER INFECTION
     Dosage: 1 G, BID
     Route: 048
     Dates: start: 20110601, end: 20110606
  3. TOBRAMYCIN [Suspect]
     Indication: ENDOTRACHEAL INTUBATION
     Route: 048
     Dates: start: 20110503, end: 20110510
  4. CLARITHROMYCIN [Suspect]
     Indication: HELICOBACTER INFECTION
     Dosage: 500 MG, BID
     Route: 048
     Dates: start: 20110601, end: 20110606
  5. AMPHOTERICIN [Suspect]
     Indication: ENDOTRACHEAL INTUBATION
     Route: 048
     Dates: start: 20110503, end: 20110510
  6. COLISTIN [Suspect]
     Indication: ENDOTRACHEAL INTUBATION
     Route: 048
     Dates: start: 20110503, end: 20110510
  7. TAZOCIN [Concomitant]

REACTIONS (2)
  - Clostridium difficile infection [Unknown]
  - Colitis [Unknown]
